FAERS Safety Report 16639657 (Version 1)
Quarter: 2019Q3

REPORT INFORMATION
  Report Type: Spontaneous
  Country: US (occurrence: US)
  Receive Date: 20190727
  Receipt Date: 20190727
  Transmission Date: 20191004
  Serious: Yes (Other)
  Sender: FDA-Public Use
  Company Number: US-JNJFOC-20190731459

PATIENT

DRUGS (1)
  1. NEUTROGENA ACNE TREATMENT UNSPECIFIE (SALICYLIC ACID) [Suspect]
     Active Substance: SALICYLIC ACID
     Indication: PRODUCT USED FOR UNKNOWN INDICATION
     Route: 061

REACTIONS (5)
  - Application site erythema [Unknown]
  - Application site pruritus [Unknown]
  - Application site dryness [Unknown]
  - Application site swelling [Unknown]
  - Application site exfoliation [Unknown]
